FAERS Safety Report 11290201 (Version 2)
Quarter: 2015Q3

REPORT INFORMATION
  Report Type: Spontaneous
  Country: US (occurrence: US)
  Receive Date: 20150721
  Receipt Date: 20150722
  Transmission Date: 20151125
  Serious: Yes (Other)
  Sender: FDA-Public Use
  Company Number: US-ELI_LILLY_AND_COMPANY-US201507006250

PATIENT
  Sex: Female

DRUGS (8)
  1. TRACLEER [Concomitant]
     Active Substance: BOSENTAN
     Dosage: UNK, UNKNOWN
     Route: 065
  2. REVATIO [Concomitant]
     Active Substance: SILDENAFIL CITRATE
     Dosage: UNK, UNKNOWN
     Route: 065
  3. VENTAVIS [Concomitant]
     Active Substance: ILOPROST
     Dosage: UNK, UNKNOWN
     Route: 065
  4. LETAIRIS [Concomitant]
     Active Substance: AMBRISENTAN
     Dosage: 20 MG, UNK
     Route: 065
  5. ADEMPAS [Concomitant]
     Active Substance: RIOCIGUAT
     Dosage: 2.5 MG, TID
     Route: 065
  6. ADCIRCA [Suspect]
     Active Substance: TADALAFIL
     Indication: PRODUCT USED FOR UNKNOWN INDICATION
     Dosage: UNK, UNKNOWN
     Route: 065
  7. REMODULIN [Concomitant]
     Active Substance: TREPROSTINIL
     Dosage: UNK, UNKNOWN
     Route: 042
  8. TYVASO [Concomitant]
     Active Substance: TREPROSTINIL
     Dosage: UNK, TID
     Route: 065

REACTIONS (1)
  - Liver disorder [Unknown]
